FAERS Safety Report 11682372 (Version 1)
Quarter: 2015Q4

REPORT INFORMATION
  Report Type: Spontaneous
  Country: US (occurrence: None)
  Receive Date: 20151028
  Receipt Date: 20151028
  Transmission Date: 20160304
  Serious: Yes (Death, Life-Threatening, Hospitalization)
  Sender: FDA-Public Use
  Company Number: None

PATIENT
  Age: 90 Year
  Sex: Male
  Weight: 66.4 kg

DRUGS (1)
  1. ASPIRIN. [Suspect]
     Active Substance: ASPIRIN
     Indication: CEREBROVASCULAR ACCIDENT PROPHYLAXIS
     Route: 048
     Dates: start: 20150429, end: 20150923

REACTIONS (14)
  - Fall [None]
  - Rib fracture [None]
  - Mental status changes [None]
  - Pleural effusion [None]
  - Haemothorax [None]
  - Parotitis [None]
  - Subarachnoid haemorrhage [None]
  - Urinary tract infection [None]
  - Pneumothorax [None]
  - Bacteraemia [None]
  - Subdural haematoma [None]
  - Hypoxia [None]
  - Agitation [None]
  - Respiratory rate increased [None]

NARRATIVE: CASE EVENT DATE: 20150923
